FAERS Safety Report 26087825 (Version 1)
Quarter: 2025Q4

REPORT INFORMATION
  Report Type: Spontaneous
  Country: US (occurrence: None)
  Receive Date: 20251125
  Receipt Date: 20251125
  Transmission Date: 20260117
  Serious: No
  Sender: AMERICAN REGENT
  Company Number: US-AMERICAN REGENT INC-2025001388

PATIENT
  Age: 44 Year
  Sex: Female
  Weight: 85 kg

DRUGS (3)
  1. VENOFER [Suspect]
     Active Substance: IRON SUCROSE
     Indication: Iron deficiency anaemia
     Dosage: UNK, SINGLE
     Dates: start: 20250306, end: 20250306
  2. VENOFER [Suspect]
     Active Substance: IRON SUCROSE
     Dosage: 300 MILLIGRAM IN NS 250 ML
     Dates: start: 20250319, end: 20250319
  3. VENOFER [Suspect]
     Active Substance: IRON SUCROSE
     Dosage: UNK, SINGLE
     Dates: start: 2025, end: 2025

REACTIONS (5)
  - Vomiting [Recovered/Resolved]
  - Nausea [Recovered/Resolved]
  - Diarrhoea [Recovered/Resolved]
  - Product quality issue [Unknown]
  - Incorrect product administration duration [Unknown]

NARRATIVE: CASE EVENT DATE: 20250301
